FAERS Safety Report 12884439 (Version 1)
Quarter: 2016Q4

REPORT INFORMATION
  Report Type: Report from Study
  Country: JP (occurrence: JP)
  Receive Date: 20161026
  Receipt Date: 20161026
  Transmission Date: 20170207
  Serious: Yes (Life-Threatening, Other)
  Sender: FDA-Public Use
  Company Number: JP-ASTELLAS-2015JP020473AA

PATIENT
  Age: 63 Year
  Sex: Male

DRUGS (22)
  1. AMLODIPINE [Concomitant]
     Active Substance: AMLODIPINE BESYLATE
     Indication: PRODUCT USED FOR UNKNOWN INDICATION
     Route: 048
     Dates: start: 20141218, end: 20151101
  2. LIVALO [Concomitant]
     Active Substance: PITAVASTATIN CALCIUM
     Indication: PRODUCT USED FOR UNKNOWN INDICATION
     Route: 048
     Dates: start: 20141218, end: 20151101
  3. PREDONINE [Concomitant]
     Active Substance: PREDNISOLONE\PREDNISOLONE ACETATE\PREDNISOLONE SODIUM SUCCINATE
     Route: 048
     Dates: start: 20150202, end: 20150308
  4. PREDONINE [Concomitant]
     Active Substance: PREDNISOLONE\PREDNISOLONE ACETATE\PREDNISOLONE SODIUM SUCCINATE
     Route: 048
     Dates: start: 20150406, end: 20150510
  5. PREDONINE [Concomitant]
     Active Substance: PREDNISOLONE\PREDNISOLONE ACETATE\PREDNISOLONE SODIUM SUCCINATE
     Route: 048
     Dates: start: 20150511, end: 20150607
  6. BASEN                              /01290601/ [Concomitant]
     Active Substance: VOGLIBOSE
     Indication: PRODUCT USED FOR UNKNOWN INDICATION
     Dosage: 0.3 MG, ONCE DAILY
     Route: 048
     Dates: end: 20141218
  7. JANUVIA [Concomitant]
     Active Substance: SITAGLIPTIN PHOSPHATE
     Indication: PRODUCT USED FOR UNKNOWN INDICATION
     Route: 048
     Dates: end: 20141223
  8. PREDONINE [Concomitant]
     Active Substance: PREDNISOLONE\PREDNISOLONE ACETATE\PREDNISOLONE SODIUM SUCCINATE
     Indication: PRODUCT USED FOR UNKNOWN INDICATION
     Route: 048
     Dates: start: 20141218, end: 20150114
  9. GLUFAST [Concomitant]
     Active Substance: MITIGLINIDE
     Indication: PRODUCT USED FOR UNKNOWN INDICATION
     Route: 048
     Dates: end: 20141218
  10. TACROLIMUS. [Suspect]
     Active Substance: TACROLIMUS
     Indication: INTERSTITIAL LUNG DISEASE
     Route: 065
     Dates: start: 20141218, end: 20141231
  11. BIOFERMIN                          /01617201/ [Concomitant]
     Active Substance: BACILLUS SUBTILIS\LACTOBACILLUS ACIDOPHILUS\STREPTOCOCCUS FAECAIS
     Indication: PROPHYLAXIS
  12. ALENDRONATE [Concomitant]
     Active Substance: ALENDRONATE SODIUM
     Indication: PROPHYLAXIS
     Route: 048
     Dates: start: 20141218
  13. PREDONINE [Concomitant]
     Active Substance: PREDNISOLONE\PREDNISOLONE ACETATE\PREDNISOLONE SODIUM SUCCINATE
     Route: 048
     Dates: start: 20150323, end: 20150405
  14. LANSOPRAZOLE. [Concomitant]
     Active Substance: LANSOPRAZOLE
     Indication: PROPHYLAXIS
     Route: 048
     Dates: start: 20141218
  15. TACROLIMUS. [Suspect]
     Active Substance: TACROLIMUS
     Indication: DERMATOMYOSITIS
     Route: 065
     Dates: start: 20150101, end: 20150706
  16. BLOPRESS [Concomitant]
     Active Substance: CANDESARTAN CILEXETIL
     Indication: PRODUCT USED FOR UNKNOWN INDICATION
     Route: 048
     Dates: start: 20141218, end: 20151206
  17. BIOFERMIN                          /01617201/ [Concomitant]
     Active Substance: BACILLUS SUBTILIS\LACTOBACILLUS ACIDOPHILUS\STREPTOCOCCUS FAECAIS
     Indication: DIARRHOEA
     Route: 048
     Dates: start: 20141220
  18. BAKTAR [Concomitant]
     Active Substance: SULFAMETHOXAZOLE\TRIMETHOPRIM
     Indication: PROPHYLAXIS
     Route: 048
     Dates: start: 20141218
  19. ONEALFA [Concomitant]
     Active Substance: ALFACALCIDOL
     Indication: PROPHYLAXIS
     Dosage: 0.5 ?G, ONCE DAILY
     Route: 048
     Dates: start: 20141218, end: 20150906
  20. PREDONINE [Concomitant]
     Active Substance: PREDNISOLONE\PREDNISOLONE ACETATE\PREDNISOLONE SODIUM SUCCINATE
     Route: 048
     Dates: start: 20150115, end: 20150201
  21. PREDONINE [Concomitant]
     Active Substance: PREDNISOLONE\PREDNISOLONE ACETATE\PREDNISOLONE SODIUM SUCCINATE
     Route: 048
     Dates: start: 20150309, end: 20150322
  22. PREDONINE [Concomitant]
     Active Substance: PREDNISOLONE\PREDNISOLONE ACETATE\PREDNISOLONE SODIUM SUCCINATE
     Route: 048
     Dates: start: 20150608

REACTIONS (1)
  - Pancreatic carcinoma [Recovering/Resolving]

NARRATIVE: CASE EVENT DATE: 20150706
